FAERS Safety Report 16822757 (Version 2)
Quarter: 2019Q3

REPORT INFORMATION
  Report Type: Other
  Country: None (occurrence: US)
  Receive Date: 20190918
  Receipt Date: 20190918
  Transmission Date: 20191005
  Serious: Yes (Life-Threatening)
  Sender: FDA-Public Use
  Company Number: CR-2019-008

PATIENT
  Age: 50 Year
  Sex: Female
  Weight: 63.18 kg

DRUGS (1)
  1. TESTOSTERONE 37.5 MG PEL [Suspect]
     Active Substance: TESTOSTERONE
     Route: 058
     Dates: start: 20190121, end: 20190516

REACTIONS (1)
  - Breast cancer [Unknown]

NARRATIVE: CASE EVENT DATE: 20190827
